FAERS Safety Report 8452128-7 (Version None)
Quarter: 2012Q2

REPORT INFORMATION
  Report Type: 
  Country: None (occurrence: None)
  Receive Date: 20120620
  Receipt Date: 20120412
  Transmission Date: 20120825
  Serious: No
  Sender: FDA-Public Use
  Company Number: US-VERTEX PHARMACEUTICALS INC.-AE-2012-004657

PATIENT
  Sex: Male
  Weight: 77.18 kg

DRUGS (4)
  1. INCIVEK [Suspect]
     Indication: HEPATITIS C
     Route: 048
     Dates: start: 20120309, end: 20120402
  2. PEGASYS [Concomitant]
     Indication: HEPATITIS C
     Route: 058
     Dates: start: 20120309, end: 20120402
  3. RIBAVIRIN [Concomitant]
     Indication: HEPATITIS C
     Route: 048
     Dates: start: 20120309, end: 20120402
  4. LORTAB [Concomitant]
     Indication: NEURALGIA
     Route: 048

REACTIONS (4)
  - BALANCE DISORDER [None]
  - DIZZINESS [None]
  - FEELING DRUNK [None]
  - FATIGUE [None]
